FAERS Safety Report 8999884 (Version 1)
Quarter: 2013Q1

REPORT INFORMATION
  Report Type: Report from Study
  Country: US (occurrence: US)
  Receive Date: 20130102
  Receipt Date: 20130102
  Transmission Date: 20140127
  Serious: No
  Sender: FDA-Public Use
  Company Number: US-VERTEX PHARMACEUTICALS INC.-2012-026811

PATIENT
  Age: 42 Year
  Sex: Female
  Weight: 64 kg

DRUGS (3)
  1. VX-950 (TELAPREVIR) [Suspect]
     Indication: HEPATITIS C
     Dosage: 750 MG, TID
     Route: 048
  2. PEGASYS [Suspect]
     Indication: HEPATITIS C
     Dosage: 180 ?G, UNK
  3. RIBAPAK [Suspect]
     Indication: HEPATITIS C
     Dosage: 800 MG, QD

REACTIONS (8)
  - Depression [Unknown]
  - Dizziness [Unknown]
  - Pyrexia [Unknown]
  - Crying [Unknown]
  - Injection site discolouration [Unknown]
  - Fatigue [Unknown]
  - Nausea [Unknown]
  - Rash [Recovered/Resolved]
